FAERS Safety Report 9031282 (Version 1)
Quarter: 2013Q1

REPORT INFORMATION
  Report Type: Report from Study
  Country: US (occurrence: US)
  Receive Date: 20130124
  Receipt Date: 20130124
  Transmission Date: 20140127
  Serious: Yes (Hospitalization)
  Sender: FDA-Public Use
  Company Number: US-009507513-1301USA010510

PATIENT
  Age: 46 Year
  Sex: Female

DRUGS (3)
  1. TEMOZOLOMIDE [Suspect]
     Indication: GLIOBLASTOMA MULTIFORME
     Dosage: UNK MG, UNK
     Route: 048
     Dates: start: 20121217, end: 20130104
  2. SPRYCEL [Suspect]
     Indication: GLIOBLASTOMA MULTIFORME
     Dosage: UNK MG, UNK
     Route: 048
     Dates: start: 20121217, end: 20130104
  3. PLACEBO [Suspect]
     Indication: GLIOBLASTOMA MULTIFORME
     Dosage: UNK
     Route: 048
     Dates: start: 20121217

REACTIONS (7)
  - Failure to thrive [Unknown]
  - Weight decreased [Unknown]
  - Nausea [Unknown]
  - Vomiting [Unknown]
  - Fatigue [Unknown]
  - Decreased appetite [Unknown]
  - Muscular weakness [Unknown]
